FAERS Safety Report 23636068 (Version 2)
Quarter: 2024Q2

REPORT INFORMATION
  Report Type: Report from Study
  Country: US (occurrence: US)
  Receive Date: 20240315
  Receipt Date: 20240508
  Transmission Date: 20240716
  Serious: Yes (Other)
  Sender: FDA-Public Use
  Company Number: US-ABBVIE-5679038

PATIENT
  Sex: Female

DRUGS (1)
  1. HUMIRA [Suspect]
     Active Substance: ADALIMUMAB
     Indication: Rheumatoid arthritis
     Route: 058
     Dates: start: 20230519

REACTIONS (6)
  - Systemic lupus erythematosus [Recovering/Resolving]
  - Throat irritation [Not Recovered/Not Resolved]
  - Discomfort [Recovering/Resolving]
  - Migraine [Unknown]
  - Fibromyalgia [Recovering/Resolving]
  - Osteoarthritis [Recovering/Resolving]
